FAERS Safety Report 6146375-7 (Version None)
Quarter: 2009Q2

REPORT INFORMATION
  Report Type: 
  Country: None (occurrence: None)
  Receive Date: 20090407
  Receipt Date: 20090327
  Transmission Date: 20091009
  Serious: Yes (Hospitalization)
  Sender: FDA-Public Use
  Company Number: US-ABBOTT-09P-163-0565123-00

PATIENT
  Sex: Female
  Weight: 116.68 kg

DRUGS (6)
  1. HUMIRA [Suspect]
     Indication: RHEUMATOID ARTHRITIS
     Route: 058
     Dates: start: 20070101
  2. DIOVAN [Concomitant]
     Indication: BLOOD PRESSURE
  3. ACTOS [Concomitant]
     Indication: DRUG USE FOR UNKNOWN INDICATION
  4. CHO MAG TRIS [Concomitant]
     Indication: ANTIINFLAMMATORY THERAPY
     Dosage: 3
  5. TRAMADOL HCL [Concomitant]
     Indication: DRUG USE FOR UNKNOWN INDICATION
  6. PREDNISONE [Concomitant]
     Indication: DRUG USE FOR UNKNOWN INDICATION
     Dosage: 8-9 MG/DAY

REACTIONS (5)
  - BRONCHITIS [None]
  - COUGH [None]
  - LOWER RESPIRATORY TRACT INFECTION VIRAL [None]
  - PYREXIA [None]
  - RESPIRATORY TRACT CONGESTION [None]
